FAERS Safety Report 8338171-7 (Version None)
Quarter: 2012Q2

REPORT INFORMATION
  Report Type: 
  Country: None (occurrence: None)
  Receive Date: 20120504
  Receipt Date: 20120425
  Transmission Date: 20120825
  Serious: Yes (Other)
  Sender: FDA-Public Use
  Company Number: JP-ASTRAZENECA-2012SE10651

PATIENT
  Age: 78 Year
  Sex: Male
  Weight: 70 kg

DRUGS (13)
  1. ROPIVACAINE HYDROCHLORIDE [Suspect]
     Indication: NERVE BLOCK
     Route: 053
     Dates: start: 20120210, end: 20120210
  2. FLURBIPROFEN [Concomitant]
     Indication: ANALGESIC THERAPY
     Route: 042
     Dates: start: 20120210, end: 20120210
  3. DROPERIDOL [Concomitant]
     Indication: VOMITING
     Route: 042
     Dates: start: 20120210, end: 20120210
  4. SIGMART [Concomitant]
     Indication: CORONARY ARTERY DILATATION
     Dosage: 4 MG/H
     Route: 042
     Dates: start: 20120210
  5. SUGAMMADEX SODIUM [Concomitant]
     Route: 042
     Dates: start: 20120210
  6. SEVOFLURANE [Concomitant]
     Indication: MAINTENANCE OF ANAESTHESIA
     Dosage: 0.6-3.0 PERCENT
     Route: 055
     Dates: start: 20120210, end: 20120210
  7. ULTIVA [Concomitant]
     Indication: ANALGESIC THERAPY
     Dosage: 0.1-0.5 MG/KG/MIN
     Route: 042
     Dates: start: 20120210, end: 20120210
  8. ROPIVACAINE HYDROCHLORIDE [Suspect]
     Route: 053
     Dates: start: 20120210, end: 20120210
  9. NEO-SYNESIN [Concomitant]
     Indication: HYPOTENSION
     Dosage: 50-100 MG
     Route: 042
     Dates: start: 20120210, end: 20120210
  10. NICARDIPINE HCL [Concomitant]
     Indication: HYPERTENSION
     Dosage: 0.5 - 1 MG
     Route: 042
     Dates: start: 20120210, end: 20120210
  11. PROPOFOL [Concomitant]
     Indication: INDUCTION OF ANAESTHESIA
     Route: 042
     Dates: start: 20120210, end: 20120210
  12. ROCURONIUM BROMIDE [Concomitant]
     Indication: HYPOTONIA
     Dosage: 70MG BOLUS + 20 MG/H
     Route: 042
     Dates: start: 20120210, end: 20120210
  13. FENTANYL CITRATE [Concomitant]
     Indication: POSTOPERATIVE ANALGESIA
     Dosage: 0.6 MG/KG/H 50 MG BY TWO
     Route: 042
     Dates: start: 20120210

REACTIONS (1)
  - DELAYED RECOVERY FROM ANAESTHESIA [None]
